FAERS Safety Report 7497388-4 (Version None)
Quarter: 2011Q2

REPORT INFORMATION
  Report Type: 
  Country: None (occurrence: None)
  Receive Date: 20110516
  Receipt Date: 20110509
  Transmission Date: 20111010
  Serious: Yes (Other)
  Sender: FDA-Public Use
  Company Number: 2011SP020936

PATIENT
  Age: 51 Year
  Sex: Male
  Weight: 140 kg

DRUGS (8)
  1. DEXAMETHASONE [Concomitant]
  2. BEROTEC [Concomitant]
  3. ALBUTEROL [Concomitant]
  4. COTRIM DS [Concomitant]
  5. TEMOZOLOMIDE [Suspect]
     Indication: PRODUCT USED FOR UNKNOWN INDICATION
     Dosage: 380 MG; PO
     Route: 048
     Dates: start: 20110217, end: 20110504
  6. FORADIL [Concomitant]
  7. ACETYLCYSTEINE [Concomitant]
  8. PULICORT [Concomitant]

REACTIONS (3)
  - CHRONIC OBSTRUCTIVE PULMONARY DISEASE [None]
  - BRONCHITIS [None]
  - CONDITION AGGRAVATED [None]
